FAERS Safety Report 15922224 (Version 1)
Quarter: 2019Q1

REPORT INFORMATION
  Report Type: Report from Study
  Country: None (occurrence: US)
  Receive Date: 20190206
  Receipt Date: 20190206
  Transmission Date: 20190417
  Serious: Yes (Hospitalization)
  Sender: FDA-Public Use
  Company Number: US-ABBVIE-18K-163-2582226-00

PATIENT
  Age: 54 Year
  Sex: Female

DRUGS (2)
  1. STELARA [Suspect]
     Active Substance: USTEKINUMAB
     Indication: PRODUCT USED FOR UNKNOWN INDICATION
     Route: 065
     Dates: start: 20170727
  2. HUMIRA [Suspect]
     Active Substance: ADALIMUMAB
     Indication: PRODUCT USED FOR UNKNOWN INDICATION
     Route: 058
     Dates: start: 201208, end: 20170703

REACTIONS (16)
  - Hypoxia [Unknown]
  - Drug ineffective [Unknown]
  - Hypophagia [Unknown]
  - Diarrhoea [Unknown]
  - Acute respiratory failure [Unknown]
  - Metapneumovirus infection [Unknown]
  - Vertigo [Recovered/Resolved]
  - Drug effect incomplete [Unknown]
  - Salmonellosis [Unknown]
  - Viral infection [Recovered/Resolved]
  - Organising pneumonia [Unknown]
  - Gastrointestinal haemorrhage [Unknown]
  - Gastrointestinal pain [Unknown]
  - Skin discolouration [Recovered/Resolved]
  - Laryngeal ulceration [Unknown]
  - Flatulence [Unknown]

NARRATIVE: CASE EVENT DATE: 201802
